FAERS Safety Report 23106574 (Version 1)
Quarter: 2023Q4

REPORT INFORMATION
  Report Type: Spontaneous
  Country: US (occurrence: US)
  Receive Date: 20231026
  Receipt Date: 20231026
  Transmission Date: 20240110
  Serious: No
  Sender: FDA-Public Use
  Company Number: US-SA-SAC20231025000077

PATIENT
  Age: 53 Year
  Sex: Female

DRUGS (10)
  1. DUPIXENT [Suspect]
     Active Substance: DUPILUMAB
     Indication: Dermatitis atopic
     Dosage: 300 MG QOW
     Route: 058
     Dates: start: 20231009
  2. AMLODIPINE [Concomitant]
     Active Substance: AMLODIPINE BESYLATE
     Dosage: UNK
  3. AZELASTINE [Concomitant]
     Active Substance: AZELASTINE
  4. CLOBETASOL [Concomitant]
     Active Substance: CLOBETASOL
  5. DICLOFENAC [Concomitant]
     Active Substance: DICLOFENAC
     Dosage: UNK
  6. ELIDEL [Concomitant]
     Active Substance: PIMECROLIMUS
  7. FOLIC ACID [Concomitant]
     Active Substance: FOLIC ACID
  8. LISINOPRIL [Concomitant]
     Active Substance: LISINOPRIL
  9. PIMECROLIMUS [Concomitant]
     Active Substance: PIMECROLIMUS
  10. ROSUVASTATIN [Concomitant]
     Active Substance: ROSUVASTATIN

REACTIONS (3)
  - Anxiety [Not Recovered/Not Resolved]
  - Skin discolouration [Recovering/Resolving]
  - Depressed mood [Not Recovered/Not Resolved]
